FAERS Safety Report 7711514-0 (Version None)
Quarter: 2011Q3

REPORT INFORMATION
  Report Type: 
  Country: None (occurrence: None)
  Receive Date: 20110826
  Receipt Date: 20110819
  Transmission Date: 20111222
  Serious: Yes (Hospitalization, Other)
  Sender: FDA-Public Use
  Company Number: AR-AMGEN-ARGSP2011040982

PATIENT
  Age: 46 Year
  Sex: Male
  Weight: 130 kg

DRUGS (8)
  1. ENBREL [Suspect]
     Indication: RHEUMATOID ARTHRITIS
     Dosage: 25 MG, 2X/WEEK
     Route: 058
     Dates: start: 20051101, end: 20100801
  2. FUROSEMIDE [Concomitant]
     Dosage: UNK
  3. MEPREDNISONE [Concomitant]
     Dosage: UNK
  4. METHOTREXATE [Concomitant]
     Dosage: UNK
  5. DICLOFENAC SODIUM [Suspect]
     Indication: PAIN
     Dosage: UNK
     Route: 030
     Dates: start: 20010101, end: 20100801
  6. OMEPRAZOLE [Concomitant]
     Dosage: UNK
  7. LOSARTAN [Concomitant]
     Dosage: UNK
  8. ACETAMINOPHEN [Concomitant]
     Dosage: UNK

REACTIONS (3)
  - GASTROINTESTINAL NECROSIS [None]
  - RENAL FAILURE [None]
  - WEIGHT DECREASED [None]
